FAERS Safety Report 5817601-6 (Version None)
Quarter: 2008Q3

REPORT INFORMATION
  Report Type: 
  Country: None (occurrence: None)
  Receive Date: 20080722
  Receipt Date: 20080710
  Transmission Date: 20090109
  Serious: Yes (Other)
  Sender: FDA-Public Use
  Company Number: GB-AVENTIS-200813200EU

PATIENT
  Age: 78 Year
  Sex: Female

DRUGS (6)
  1. FRUMIL [Suspect]
     Dosage: DOSE: 5/40
     Route: 048
  2. FRUMIL [Suspect]
     Dosage: DOSE: 5/40
     Route: 048
  3. MEPROBAMATE [Concomitant]
     Indication: ANXIETY
     Route: 048
     Dates: start: 19910101
  4. ASPIRIN [Concomitant]
     Route: 048
     Dates: start: 20020101
  5. PREDNISOLONE [Concomitant]
     Indication: POLYMYALGIA RHEUMATICA
     Dosage: DOSE: 2.5/5
     Route: 048
     Dates: start: 20020101
  6. BISOPROLOL FUMARATE [Concomitant]
     Route: 048
     Dates: start: 20080326

REACTIONS (5)
  - CATARACT SUBCAPSULAR [None]
  - DRY EYE [None]
  - ECTROPION [None]
  - MACULAR DEGENERATION [None]
  - PHOTOPHOBIA [None]
